FAERS Safety Report 15096797 (Version 1)
Quarter: 2018Q3

REPORT INFORMATION
  Report Type: Spontaneous
  Country: US (occurrence: US)
  Receive Date: 20180702
  Receipt Date: 20180702
  Transmission Date: 20181010
  Serious: No
  Sender: FDA-Public Use
  Company Number: US-TEVA-793617USA

PATIENT
  Age: 53 Year
  Sex: Female

DRUGS (17)
  1. AMLODIPINE [Suspect]
     Active Substance: AMLODIPINE BESYLATE
     Dosage: 5 MILLIGRAM DAILY;
  2. GABAPENTIN. [Concomitant]
     Active Substance: GABAPENTIN
     Dosage: 2400 MILLIGRAM DAILY;
  3. CYMBALTA [Concomitant]
     Active Substance: DULOXETINE HYDROCHLORIDE
     Dosage: 120 MILLIGRAM DAILY;
  4. LEVOTHYROXINE. [Concomitant]
     Active Substance: LEVOTHYROXINE
  5. FENOFIBRATE. [Concomitant]
     Active Substance: FENOFIBRATE
     Dosage: 86 MILLIGRAM DAILY;
  6. COPAXONE [Concomitant]
     Active Substance: GLATIRAMER ACETATE
     Indication: MULTIPLE SCLEROSIS
     Route: 058
     Dates: start: 20170609
  7. KLONOPIN [Concomitant]
     Active Substance: CLONAZEPAM
  8. CRESTOR [Concomitant]
     Active Substance: ROSUVASTATIN CALCIUM
  9. AMLODIPINE [Suspect]
     Active Substance: AMLODIPINE BESYLATE
     Indication: HYPERTENSION
     Dates: start: 20170720, end: 20170727
  10. KLONOPIN [Concomitant]
     Active Substance: CLONAZEPAM
  11. OXYBUTYNIN ER [Concomitant]
     Active Substance: OXYBUTYNIN
  12. HYDROXYZINE PAMOATE. [Concomitant]
     Active Substance: HYDROXYZINE PAMOATE
     Dosage: 100 MILLIGRAM DAILY;
  13. KLONOPIN [Concomitant]
     Active Substance: CLONAZEPAM
     Dosage: 20 MILLIGRAM DAILY;
  14. NEXIUM [Concomitant]
     Active Substance: ESOMEPRAZOLE MAGNESIUM
  15. ESTRADIOL. [Concomitant]
     Active Substance: ESTRADIOL
  16. ALBUTEROL RESCUE [Concomitant]
  17. QVAR [Concomitant]
     Active Substance: BECLOMETHASONE DIPROPIONATE
     Dosage: 2 PUFFS

REACTIONS (1)
  - Peripheral swelling [Recovered/Resolved]

NARRATIVE: CASE EVENT DATE: 201707
